FAERS Safety Report 6493203-6 (Version None)
Quarter: 2009Q4

REPORT INFORMATION
  Report Type: 
  Country: None (occurrence: None)
  Receive Date: 20091211
  Receipt Date: 20091211
  Transmission Date: 20100525
  Serious: Yes (Life-Threatening)
  Sender: FDA-Public Use
  Company Number: None

PATIENT
  Age: 51 Year
  Sex: Female
  Weight: 88 kg

DRUGS (1)
  1. VENOFER [Suspect]
     Indication: IRON DEFICIENCY
     Dosage: 100 MG ONE TIME IV
     Route: 042
     Dates: start: 20090918, end: 20091207

REACTIONS (3)
  - FLUSHING [None]
  - INFUSION RELATED REACTION [None]
  - NAUSEA [None]
